FAERS Safety Report 23485152 (Version 1)
Quarter: 2024Q1

REPORT INFORMATION
  Report Type: Spontaneous
  Country: US (occurrence: US)
  Receive Date: 20240206
  Receipt Date: 20240206
  Transmission Date: 20240410
  Serious: No
  Sender: FDA-Public Use
  Company Number: US-SA-SAC20240129000275

PATIENT
  Sex: Female
  Weight: 16.32 kg

DRUGS (1)
  1. DUPIXENT [Suspect]
     Active Substance: DUPILUMAB
     Indication: Dermatitis allergic
     Dosage: 300 MG, QM
     Route: 058

REACTIONS (7)
  - Dermatitis allergic [Unknown]
  - Condition aggravated [Unknown]
  - Rash erythematous [Unknown]
  - Skin haemorrhage [Unknown]
  - Dry skin [Unknown]
  - Skin irritation [Unknown]
  - Scratch [Unknown]
